FAERS Safety Report 7341786-6 (Version None)
Quarter: 2011Q1

REPORT INFORMATION
  Report Type: 
  Country: None (occurrence: None)
  Receive Date: 20110309
  Receipt Date: 20110222
  Transmission Date: 20110831
  Serious: Yes (Life-Threatening)
  Sender: FDA-Public Use
  Company Number: AU-TYCO HEALTHCARE/MALLINCKRODT-T201100547

PATIENT
  Sex: Female
  Weight: 60 kg

DRUGS (2)
  1. EXALGO [Suspect]
     Indication: DRUG DEPENDENCE
     Dosage: UNK
     Dates: start: 20110201
  2. METHADOSE [Suspect]
     Indication: DRUG DEPENDENCE
     Dosage: UNK

REACTIONS (3)
  - DRUG LEVEL INCREASED [None]
  - DRUG DIVERSION [None]
  - DRUG ABUSE [None]
